FAERS Safety Report 6743939-4 (Version None)
Quarter: 2010Q2

REPORT INFORMATION
  Report Type: 
  Country: None (occurrence: None)
  Receive Date: 20100527
  Receipt Date: 20100514
  Transmission Date: 20101027
  Serious: Yes (Hospitalization, Other)
  Sender: FDA-Public Use
  Company Number: PHHY2010US31635

PATIENT
  Sex: Female
  Weight: 53.6 kg

DRUGS (13)
  1. EXJADE [Suspect]
     Indication: IRON OVERLOAD
     Dosage: 1000 MG DAILY
     Route: 048
     Dates: start: 20100323, end: 20100419
  2. EXJADE [Suspect]
     Indication: NEOPLASM
     Dosage: UNK; DOSE REDUCED
     Route: 048
  3. TEGRETOL [Concomitant]
  4. SLOW-MAG [Concomitant]
  5. ZOFRAN [Concomitant]
  6. PROCHLORPERAZINE [Concomitant]
  7. COLACE [Concomitant]
  8. TESSALON [Concomitant]
  9. TYLENOL (CAPLET) [Concomitant]
     Dosage: 500 MG EVERY 4 HOUR WHEN NEEDED
     Route: 048
  10. VALTREX [Concomitant]
     Indication: HERPES ZOSTER
     Dosage: 1000 MG, BID
     Route: 048
     Dates: start: 20100407, end: 20100414
  11. DACOGEN [Concomitant]
     Dosage: UNK
     Dates: start: 20100419
  12. ANTINEOPLASTIC AGENTS [Concomitant]
     Dosage: UNK
  13. ANALGESICS [Concomitant]
     Dosage: UNK

REACTIONS (3)
  - EPISTAXIS [None]
  - PLATELET COUNT DECREASED [None]
  - RENAL FAILURE [None]
